FAERS Safety Report 19949780 (Version 2)
Quarter: 2022Q2

REPORT INFORMATION
  Report Type: Spontaneous
  Country: CA (occurrence: CA)
  Receive Date: 20211013
  Receipt Date: 20220622
  Transmission Date: 20220720
  Serious: Yes (Death, Hospitalization)
  Sender: FDA-Public Use
  Company Number: CA-NOVARTISPH-NVSC2021CA233496

PATIENT
  Age: 71 Year
  Sex: Female

DRUGS (1)
  1. ZOFRAN [Suspect]
     Active Substance: ONDANSETRON HYDROCHLORIDE
     Indication: Nausea
     Dosage: UNK
     Route: 048

REACTIONS (11)
  - Asthenia [Fatal]
  - Abdominal pain [Fatal]
  - Cerebrovascular accident [Fatal]
  - Heart rate increased [Fatal]
  - Muscle rigidity [Fatal]
  - Muscle spasms [Fatal]
  - Vomiting [Fatal]
  - Chest pain [Fatal]
  - Abdominal pain upper [Fatal]
  - Diarrhoea [Fatal]
  - Headache [Fatal]
